FAERS Safety Report 7007968-8 (Version None)
Quarter: 2010Q3

REPORT INFORMATION
  Report Type: 
  Country: None (occurrence: None)
  Receive Date: 20100922
  Receipt Date: 20100917
  Transmission Date: 20110219
  Serious: Yes (Other)
  Sender: FDA-Public Use
  Company Number: DE-ROXANE LABORATORIES, INC.-2010-RO-01243RO

PATIENT
  Age: 37 Year
  Sex: Female

DRUGS (4)
  1. RISPERIDONE [Suspect]
     Indication: SCHIZOAFFECTIVE DISORDER
     Dosage: 0.5 MG
  2. RISPERIDONE [Suspect]
     Dosage: 1 MG
  3. VENLAFAXINE [Suspect]
     Indication: SCHIZOAFFECTIVE DISORDER
     Dosage: 75 MG
  4. VENLAFAXINE [Suspect]
     Indication: DEPRESSION
     Dosage: 300 MG

REACTIONS (1)
  - DRUG TOXICITY [None]
